FAERS Safety Report 12305343 (Version 4)
Quarter: 2016Q3

REPORT INFORMATION
  Report Type: Report from Study
  Country: JP (occurrence: JP)
  Receive Date: 20160426
  Receipt Date: 20160812
  Transmission Date: 20161109
  Serious: Yes (Death, Hospitalization, Other)
  Sender: FDA-Public Use
  Company Number: JP-GLAXOSMITHKLINE-JP2016JPN055141

PATIENT
  Age: 61 Year
  Sex: Male
  Weight: 76 kg

DRUGS (23)
  1. AMBRISENTAN [Suspect]
     Active Substance: AMBRISENTAN
     Indication: PULMONARY HYPERTENSION
     Dosage: 10 MG, QD
     Route: 048
     Dates: start: 20150318
  2. ADCIRCA [Concomitant]
     Active Substance: TADALAFIL
     Indication: PULMONARY VENO-OCCLUSIVE DISEASE
     Dosage: UNK
     Dates: start: 20150226
  3. REVATIO [Concomitant]
     Active Substance: SILDENAFIL CITRATE
     Indication: PULMONARY HYPERTENSION
  4. SAMSCA [Concomitant]
     Active Substance: TOLVAPTAN
     Dosage: UNK
     Dates: start: 20150812
  5. FEBURIC [Concomitant]
     Active Substance: FEBUXOSTAT
     Dosage: UNK
     Dates: start: 20160109
  6. SOL-MELCORT [Suspect]
     Active Substance: METHYLPREDNISOLONE SODIUM SUCCINATE
     Indication: PULMONARY VENO-OCCLUSIVE DISEASE
     Dosage: UNK
     Dates: start: 20160329, end: 20160331
  7. REVATIO [Concomitant]
     Active Substance: SILDENAFIL CITRATE
     Indication: PULMONARY VENO-OCCLUSIVE DISEASE
     Dosage: UNK
     Dates: start: 20150512
  8. FLOLAN [Suspect]
     Active Substance: EPOPROSTENOL SODIUM
     Indication: PULMONARY VENO-OCCLUSIVE DISEASE
     Dosage: UNK
     Route: 041
     Dates: start: 20151225, end: 20160329
  9. FLOLAN [Suspect]
     Active Substance: EPOPROSTENOL SODIUM
     Indication: PULMONARY HYPERTENSION
  10. AMBRISENTAN [Suspect]
     Active Substance: AMBRISENTAN
     Indication: PULMONARY VENO-OCCLUSIVE DISEASE
     Dosage: 5 MG, QD
     Route: 048
     Dates: start: 20150304, end: 20150317
  11. TREPROST [Concomitant]
     Indication: PULMONARY VENO-OCCLUSIVE DISEASE
     Dosage: UNK
     Dates: start: 20160329
  12. TREPROST [Concomitant]
     Indication: PULMONARY HYPERTENSION
  13. GLUCOSE [Suspect]
     Active Substance: DEXTROSE
     Indication: PULMONARY VENO-OCCLUSIVE DISEASE
     Dosage: UNK
     Dates: start: 20160329, end: 20160331
  14. BERASUS LA [Concomitant]
     Indication: PULMONARY VENO-OCCLUSIVE DISEASE
     Dosage: UNK
     Dates: start: 20150812
  15. BAKTAR [Concomitant]
     Active Substance: SULFAMETHOXAZOLE\TRIMETHOPRIM
     Indication: INFECTION PROPHYLAXIS
     Dosage: UNK
     Dates: start: 20160331
  16. SOL-MELCORT [Suspect]
     Active Substance: METHYLPREDNISOLONE SODIUM SUCCINATE
     Indication: PULMONARY HYPERTENSION
  17. GLUCOSE [Suspect]
     Active Substance: DEXTROSE
     Indication: PULMONARY HYPERTENSION
  18. BERASUS LA [Concomitant]
     Indication: PULMONARY HYPERTENSION
  19. PREDNISOLONE. [Suspect]
     Active Substance: PREDNISOLONE
     Dosage: UNK
     Route: 048
     Dates: start: 20160331
  20. ADCIRCA [Concomitant]
     Active Substance: TADALAFIL
     Indication: PULMONARY HYPERTENSION
  21. PARIET [Concomitant]
     Active Substance: RABEPRAZOLE SODIUM
     Indication: GASTRITIS PROPHYLAXIS
     Dosage: UNK
  22. BONALON [Concomitant]
     Active Substance: ALENDRONATE SODIUM
     Indication: OSTEOPOROSIS PROPHYLAXIS
     Dosage: UNK
     Dates: start: 20160401
  23. FUROSEMIDE. [Concomitant]
     Active Substance: FUROSEMIDE
     Dosage: UNK
     Dates: start: 20150227

REACTIONS (5)
  - Platelet count decreased [Fatal]
  - Occult blood positive [Recovering/Resolving]
  - Haemoptysis [Recovering/Resolving]
  - Diarrhoea [Fatal]
  - Cardiac failure [Recovering/Resolving]

NARRATIVE: CASE EVENT DATE: 20151215
